FAERS Safety Report 12140466 (Version 2)
Quarter: 2016Q1

REPORT INFORMATION
  Report Type: Spontaneous
  Country: US (occurrence: US)
  Receive Date: 20160303
  Receipt Date: 20160318
  Transmission Date: 20160526
  Serious: Yes (Life-Threatening, Hospitalization, Other)
  Sender: FDA-Public Use
  Company Number: US-SA-2016SA039677

PATIENT
  Age: 80 Year
  Sex: Male

DRUGS (1)
  1. RENVELA [Suspect]
     Active Substance: SEVELAMER CARBONATE
     Indication: END STAGE RENAL DISEASE
     Route: 065

REACTIONS (5)
  - Cerebral haemorrhage [Unknown]
  - Cataract operation [Unknown]
  - Aneurysm [Unknown]
  - Back disorder [Unknown]
  - Hyperphosphataemia [Unknown]
